FAERS Safety Report 7279636-9 (Version None)
Quarter: 2011Q1

REPORT INFORMATION
  Report Type: 
  Country: None (occurrence: None)
  Receive Date: 20110203
  Receipt Date: 20110203
  Transmission Date: 20110831
  Serious: Yes (Hospitalization)
  Sender: FDA-Public Use
  Company Number: None

PATIENT
  Sex: Male
  Weight: 53.4 kg

DRUGS (14)
  1. TEMOZOLOMIDE [Suspect]
     Dosage: 800 MG
     Dates: end: 20110109
  2. HEPARIN LOCK-FLUSH [Concomitant]
  3. CAMPTOSAR [Suspect]
     Dosage: 400 MG
     Dates: end: 20110109
  4. FIBER CHOICE [Concomitant]
  5. GABAPENTIN [Concomitant]
  6. NYSTATIN [Concomitant]
  7. ONDANSETRON [Concomitant]
  8. VINCRISTINE SULFATE [Suspect]
     Dosage: 4 MG
     Dates: end: 20110112
  9. LORAZEPAM [Concomitant]
  10. POLYETHYLENE GLYCOL [Concomitant]
  11. BISACODYL [Concomitant]
  12. HYDROMORPHONE [Concomitant]
  13. DIPHENHYDRAMINE [Concomitant]
  14. PENTAMIDINE ISETHIONATE [Concomitant]

REACTIONS (6)
  - DIARRHOEA [None]
  - TONGUE ULCERATION [None]
  - PYREXIA [None]
  - MUCOSAL INFLAMMATION [None]
  - MOVEMENT DISORDER [None]
  - MUCOSAL ULCERATION [None]
